FAERS Safety Report 19029134 (Version 10)
Quarter: 2022Q2

REPORT INFORMATION
  Report Type: Report from Study
  Country: FR (occurrence: FR)
  Receive Date: 20210318
  Receipt Date: 20220520
  Transmission Date: 20220721
  Serious: Yes (Other)
  Sender: FDA-Public Use
  Company Number: FR-JNJFOC-20210313296

PATIENT
  Age: 61 Year
  Sex: Female

DRUGS (6)
  1. SPRAVATO [Suspect]
     Active Substance: ESKETAMINE
     Indication: Depression
     Dosage: 56 MG, REPORTED BOTH AS TOTAL 4 DOSES AND 7 DOSES
     Dates: start: 20210302, end: 20210311
  2. SPRAVATO [Suspect]
     Active Substance: ESKETAMINE
     Dosage: 84 MG, REPORTED BOTH AS TOTAL 4 DOSES AND 6 DOSES.
     Dates: start: 20210316, end: 20210325
  3. PAROXETINE HYDROCHLORIDE [Concomitant]
     Active Substance: PAROXETINE HYDROCHLORIDE
     Indication: Antidepressant therapy
     Dates: start: 20190601
  4. PRAZEPAM [Concomitant]
     Active Substance: PRAZEPAM
     Indication: Anxiety
     Dates: start: 20190601
  5. LYRICA [Concomitant]
     Active Substance: PREGABALIN
     Indication: Anxiety
     Dates: start: 20190601
  6. KARDEGIC [Concomitant]
     Active Substance: ASPIRIN DL-LYSINE
     Indication: Anticoagulant therapy
     Dates: start: 20190601

REACTIONS (4)
  - Dissociative disorder [Recovered/Resolved]
  - Blood pressure increased [Recovered/Resolved]
  - Dizziness [Recovered/Resolved]
  - Drug ineffective [Recovered/Resolved]

NARRATIVE: CASE EVENT DATE: 20210302
